FAERS Safety Report 7134907-1 (Version None)
Quarter: 2010Q4

REPORT INFORMATION
  Report Type: 
  Country: None (occurrence: None)
  Receive Date: 20101203
  Receipt Date: 20101124
  Transmission Date: 20110411
  Serious: Yes (Hospitalization, Other)
  Sender: FDA-Public Use
  Company Number: JP-ABBOTT-10P-087-0681878-00

PATIENT
  Sex: Male
  Weight: 48 kg

DRUGS (6)
  1. HUMIRA [Suspect]
     Indication: PSORIATIC ARTHROPATHY
     Route: 058
     Dates: start: 20100511, end: 20100720
  2. HUMIRA [Suspect]
     Route: 058
     Dates: start: 20100810, end: 20101005
  3. SALAZOSULFAPYRIDINE [Concomitant]
     Indication: PSORIATIC ARTHROPATHY
     Route: 048
     Dates: start: 20100511, end: 20100524
  4. CELECOXIB [Concomitant]
     Indication: PSORIATIC ARTHROPATHY
     Route: 048
     Dates: start: 20100511, end: 20100525
  5. CELECOXIB [Concomitant]
     Dates: start: 20101005, end: 20101116
  6. DICLOFENAC SODIUM [Concomitant]
     Indication: PSORIATIC ARTHROPATHY
     Route: 048
     Dates: start: 20101005, end: 20101014

REACTIONS (8)
  - ARTHRALGIA [None]
  - BACK PAIN [None]
  - COMA [None]
  - ENCEPHALOPATHY [None]
  - MUSCULOSKELETAL STIFFNESS [None]
  - NYSTAGMUS [None]
  - OXYGEN SATURATION DECREASED [None]
  - PYREXIA [None]
